FAERS Safety Report 6675418-7 (Version None)
Quarter: 2010Q2

REPORT INFORMATION
  Report Type: 
  Country: None (occurrence: None)
  Receive Date: 20100409
  Receipt Date: 20100329
  Transmission Date: 20101027
  Serious: Yes (Hospitalization, Other)
  Sender: FDA-Public Use
  Company Number: US-AMGEN-QUU382036

PATIENT
  Sex: Female
  Weight: 59 kg

DRUGS (11)
  1. ENBREL [Suspect]
     Indication: RHEUMATOID ARTHRITIS
     Route: 058
     Dates: start: 20060301
  2. COUMADIN [Suspect]
     Route: 048
  3. TRILIPIX [Suspect]
  4. ASPIRIN [Concomitant]
  5. ATENOLOL [Concomitant]
     Route: 048
  6. LIPITOR [Concomitant]
     Route: 048
  7. SENSIPAR [Concomitant]
     Route: 048
  8. LASIX [Concomitant]
     Route: 048
  9. MELOXICAM [Concomitant]
     Route: 048
  10. DETROL [Concomitant]
     Route: 048
  11. ALLOPURINOL [Concomitant]
     Route: 048

REACTIONS (13)
  - ANAEMIA [None]
  - COAGULOPATHY [None]
  - DIARRHOEA [None]
  - EPISTAXIS [None]
  - GASTROINTESTINAL HAEMORRHAGE [None]
  - HAEMATOMA [None]
  - HYPOVOLAEMIC SHOCK [None]
  - INFLUENZA LIKE ILLNESS [None]
  - INJECTION SITE HAEMATOMA [None]
  - INJECTION SITE PAIN [None]
  - RENAL FAILURE [None]
  - RHEUMATOID ARTHRITIS [None]
  - SKIN IRRITATION [None]
